FAERS Safety Report 6438117-2 (Version None)
Quarter: 2009Q4

REPORT INFORMATION
  Report Type: 
  Country: None (occurrence: None)
  Receive Date: 20091112
  Receipt Date: 20091104
  Transmission Date: 20100525
  Serious: Yes (Hospitalization, Other)
  Sender: FDA-Public Use
  Company Number: BR-ABBOTT-09P-020-0606991-00

PATIENT
  Sex: Male
  Weight: 60 kg

DRUGS (5)
  1. HUMIRA [Suspect]
     Indication: CROHN'S DISEASE
     Route: 058
     Dates: start: 20081101, end: 20081101
  2. HUMIRA [Suspect]
     Route: 058
  3. HUMIRA [Suspect]
     Route: 058
  4. RIVOTRIL [Concomitant]
     Indication: SEDATIVE THERAPY
     Dosage: FORM STRENGTH : 0.5 MG1/2 TABLET
     Route: 048
  5. UNKNOWN THERAPY [Concomitant]
     Indication: VITAMIN SUPPLEMENTATION
     Route: 048

REACTIONS (5)
  - ANAEMIA [None]
  - DECREASED APPETITE [None]
  - SINUSITIS [None]
  - SKIN DISORDER [None]
  - STOMATITIS [None]
